FAERS Safety Report 21474222 (Version 1)
Quarter: 2022Q4

REPORT INFORMATION
  Report Type: Spontaneous
  Country: CO (occurrence: CO)
  Receive Date: 20221018
  Receipt Date: 20221018
  Transmission Date: 20230113
  Serious: Yes (Hospitalization, Other)
  Sender: FDA-Public Use
  Company Number: CO-ViiV Healthcare Limited-CO2022GSK146995

PATIENT

DRUGS (2)
  1. LAMIVUDINE AND ZIDOVUDINE [Suspect]
     Active Substance: LAMIVUDINE\ZIDOVUDINE
     Indication: HIV infection
     Dosage: UNK
  2. EFAVIRENZ [Suspect]
     Active Substance: EFAVIRENZ
     Indication: HIV infection
     Dosage: UNK

REACTIONS (28)
  - Histoplasmosis [Recovered/Resolved]
  - Shigella infection [Recovered/Resolved]
  - Virologic failure [Recovered/Resolved]
  - COVID-19 [Recovered/Resolved]
  - Chills [Recovered/Resolved]
  - Cough [Unknown]
  - Pyrexia [Recovered/Resolved]
  - Night sweats [Unknown]
  - Abdominal pain [Unknown]
  - Diarrhoea [Recovered/Resolved]
  - Dyspnoea [Recovering/Resolving]
  - Cachexia [Recovered/Resolved]
  - Hypoxia [Recovering/Resolving]
  - Tachycardia [Unknown]
  - Abdominal tenderness [Unknown]
  - Hepatomegaly [Unknown]
  - Rales [Unknown]
  - Wheezing [Unknown]
  - Anaemia [Recovering/Resolving]
  - Leukopenia [Recovering/Resolving]
  - Lymphopenia [Recovering/Resolving]
  - Hypoalbuminaemia [Recovering/Resolving]
  - Hypertransaminasaemia [Recovering/Resolving]
  - Lung opacity [Unknown]
  - Pulmonary septal thickening [Unknown]
  - Lung consolidation [Unknown]
  - Bronchiectasis [Unknown]
  - Treatment noncompliance [Unknown]

NARRATIVE: CASE EVENT DATE: 20220101
